FAERS Safety Report 9353986 (Version 1)
Quarter: 2013Q2

REPORT INFORMATION
  Report Type: Spontaneous
  Country: CA (occurrence: CA)
  Receive Date: 20130618
  Receipt Date: 20130618
  Transmission Date: 20140414
  Serious: Yes (Other)
  Sender: FDA-Public Use
  Company Number: CA-UCBSA-088410

PATIENT
  Age: 51 Year
  Sex: Female

DRUGS (14)
  1. VIMPAT [Suspect]
     Indication: EPILEPSY
     Dosage: 100MG AM AND 50 MG PM
     Route: 048
     Dates: start: 20130507
  2. LEVETIRACETAM [Concomitant]
     Route: 048
  3. CALCIUM [Concomitant]
  4. CLOBAZAM [Concomitant]
     Route: 048
  5. DOMPERIDONE [Concomitant]
     Route: 048
  6. ENALAPRIL [Concomitant]
  7. HYDROCHLOROTHIAZIDE [Concomitant]
  8. LEVOCARNITINE [Concomitant]
     Route: 048
  9. LEVOTHYROXINE [Concomitant]
     Route: 048
  10. PHENYTOIN [Concomitant]
  11. POTASSIUM [Concomitant]
     Route: 048
  12. VALPROIC ACID [Concomitant]
     Dosage: 250
     Route: 048
  13. VALPROIC ACID [Concomitant]
     Route: 048
  14. VITAMIN D [Concomitant]
     Route: 048

REACTIONS (2)
  - Breast discharge [Recovered/Resolved]
  - Nipple disorder [Not Recovered/Not Resolved]
